FAERS Safety Report 14412655 (Version 1)
Quarter: 2018Q1

REPORT INFORMATION
  Report Type: Spontaneous
  Country: US (occurrence: US)
  Receive Date: 20180119
  Receipt Date: 20180119
  Transmission Date: 20180509
  Serious: Yes (Hospitalization)
  Sender: FDA-Public Use
  Company Number: None

PATIENT
  Age: 93 Year
  Sex: Female
  Weight: 53.4 kg

DRUGS (12)
  1. LIDOCAINE. [Concomitant]
     Active Substance: LIDOCAINE
  2. FENTANYL. [Suspect]
     Active Substance: FENTANYL
     Indication: CARDIOVERSION
     Dosage: DATES OF USE - RECENT
     Route: 042
  3. CARDIZEM [Concomitant]
     Active Substance: DILTIAZEM HYDROCHLORIDE
  4. MIDAZOLAM [Suspect]
     Active Substance: MIDAZOLAM HYDROCHLORIDE
     Indication: CARDIOVERSION
     Dosage: DATES OF USE - RECENT
     Route: 042
  5. ASA [Concomitant]
     Active Substance: ASPIRIN
  6. CYANOCOBALAMIN. [Concomitant]
     Active Substance: CYANOCOBALAMIN
  7. HEPARIN [Concomitant]
     Active Substance: HEPARIN SODIUM
  8. FENTANYL. [Suspect]
     Active Substance: FENTANYL
     Indication: ECHOCARDIOGRAM
     Dosage: DATES OF USE - RECENT
     Route: 042
  9. MIDAZOLAM [Suspect]
     Active Substance: MIDAZOLAM HYDROCHLORIDE
     Indication: ECHOCARDIOGRAM
     Dosage: DATES OF USE - RECENT
     Route: 042
  10. VIBRAMYCIN [Concomitant]
     Active Substance: DOXYCYCLINE
  11. AMIODARONE [Concomitant]
     Active Substance: AMIODARONE
  12. VITAMIN C [Concomitant]
     Active Substance: ASCORBIC ACID

REACTIONS (3)
  - Somnolence [None]
  - Hypotension [None]
  - Bradycardia [None]

NARRATIVE: CASE EVENT DATE: 20171020
